FAERS Safety Report 8346340-5 (Version None)
Quarter: 2012Q2

REPORT INFORMATION
  Report Type: 
  Country: None (occurrence: None)
  Receive Date: 20120509
  Receipt Date: 20120430
  Transmission Date: 20120825
  Serious: Yes (Other)
  Sender: FDA-Public Use
  Company Number: US-PFIZER INC-2012025248

PATIENT
  Sex: Female
  Weight: 58.957 kg

DRUGS (8)
  1. PRISTIQ [Concomitant]
     Indication: DEPRESSION
     Dosage: 150 MG, 2X/DAY
  2. LYRICA [Suspect]
     Dosage: 300 MG, 1X/DAY
     Route: 048
     Dates: start: 20120101, end: 20120101
  3. LYRICA [Suspect]
     Indication: OSTEOARTHRITIS
     Dosage: 150 MG, 2X/DAY
     Route: 048
     Dates: start: 20120101
  4. LYRICA [Suspect]
     Indication: FIBROMYALGIA
     Dosage: 75 MG, 3X/DAY
     Route: 048
     Dates: start: 20120101
  5. GABAPENTIN [Suspect]
     Indication: FIBROMYALGIA
     Dosage: 300 MG, 1X/DAY
     Route: 048
     Dates: start: 20120101, end: 20120101
  6. LIBRAX [Concomitant]
     Indication: IRRITABLE BOWEL SYNDROME
     Dosage: UNK, 2X/DAY
  7. PRISTIQ [Concomitant]
     Indication: ANXIETY
  8. LEVOTHYROXINE [Concomitant]
     Indication: HYPOTHYROIDISM
     Dosage: 50 MG, UNK

REACTIONS (11)
  - RESPIRATORY TRACT INFECTION [None]
  - CONSTIPATION [None]
  - PAIN [None]
  - EPIDERMOLYSIS BULLOSA [None]
  - VISION BLURRED [None]
  - OSTEOARTHRITIS [None]
  - DIZZINESS [None]
  - INFLUENZA [None]
  - DRUG INTOLERANCE [None]
  - NASOPHARYNGITIS [None]
  - SOMNOLENCE [None]
